FAERS Safety Report 23787681 (Version 1)
Quarter: 2024Q2

REPORT INFORMATION
  Report Type: Spontaneous
  Country: US (occurrence: US)
  Receive Date: 20240426
  Receipt Date: 20240426
  Transmission Date: 20240716
  Serious: Yes (Other)
  Sender: FDA-Public Use
  Company Number: US-HIKMA PHARMACEUTICALS-US-H14001-24-03397

PATIENT

DRUGS (6)
  1. BUPIVACAINE HYDROCHLORIDE [Suspect]
     Active Substance: BUPIVACAINE HYDROCHLORIDE\BUPIVACAINE HYDROCHLORIDE ANHYDROUS
     Indication: Breakthrough pain
     Dosage: UNK
     Route: 037
  2. CLONIDINE [Suspect]
     Active Substance: CLONIDINE
     Indication: Breakthrough pain
     Dosage: UNK
     Route: 037
  3. HYDROMORPHONE [Suspect]
     Active Substance: HYDROMORPHONE
     Dosage: 8 MILLIGRAM, 16 TABLETS PER DAY
     Route: 048
  4. HYDROMORPHONE [Suspect]
     Active Substance: HYDROMORPHONE
     Indication: Breakthrough pain
     Dosage: 8 MILLIGRAM, 8 TABLETS PER DAY
     Route: 048
  5. HYDROMORPHONE [Suspect]
     Active Substance: HYDROMORPHONE
     Indication: Breakthrough pain
     Dosage: UNK
     Route: 037
  6. HYDROMORPHONE [Suspect]
     Active Substance: HYDROMORPHONE
     Dosage: 4 MILLIGRAM, DUE TO A SHORTAGE OF 8 MG TABLETS
     Route: 048

REACTIONS (4)
  - Transient ischaemic attack [Unknown]
  - Loss of consciousness [Unknown]
  - Hospitalisation [Unknown]
  - Hypertension [Unknown]
